FAERS Safety Report 16125633 (Version 1)
Quarter: 2019Q1

REPORT INFORMATION
  Report Type: Spontaneous
  Country: MX (occurrence: MX)
  Receive Date: 20190328
  Receipt Date: 20190328
  Transmission Date: 20190418
  Serious: Yes (Other)
  Sender: FDA-Public Use
  Company Number: MX-CELLTRION INC.-2019MX019561

PATIENT

DRUGS (1)
  1. REMSIMA [Suspect]
     Active Substance: INFLIXIMAB
     Indication: COLITIS ULCERATIVE
     Dosage: 200 MG, EVERY 8 WEEKS
     Route: 042
     Dates: start: 2018

REACTIONS (1)
  - Umbilical hernia [Recovered/Resolved]
